FAERS Safety Report 15100862 (Version 1)
Quarter: 2018Q3

REPORT INFORMATION
  Report Type: Spontaneous
  Country: US (occurrence: US)
  Receive Date: 20180703
  Receipt Date: 20180703
  Transmission Date: 20181010
  Serious: No
  Sender: FDA-Public Use
  Company Number: US-GLENMARK PHARMACEUTICALS-2018GMK032730

PATIENT

DRUGS (1)
  1. MUPIROCIN. [Suspect]
     Active Substance: MUPIROCIN
     Indication: NASAL DISCOMFORT
     Dosage: UNK, OD
     Route: 045
     Dates: start: 20180220, end: 20180221

REACTIONS (3)
  - Product use in unapproved indication [Unknown]
  - Incorrect route of drug administration [Unknown]
  - No adverse event [Unknown]

NARRATIVE: CASE EVENT DATE: 20180220
